FAERS Safety Report 8261627-2 (Version None)
Quarter: 2012Q2

REPORT INFORMATION
  Report Type: 
  Country: None (occurrence: None)
  Receive Date: 20120405
  Receipt Date: 20120326
  Transmission Date: 20120825
  Serious: Yes (Death, Hospitalization, Other)
  Sender: FDA-Public Use
  Company Number: FR-PFIZER INC-2012085224

PATIENT
  Age: 47 Year
  Sex: Male

DRUGS (6)
  1. RAMIPRIL [Suspect]
     Dosage: 50 MG ONCE DAILY
     Route: 048
     Dates: start: 20110901, end: 20111225
  2. IRBESARTAN + HYDROCHLOROTHIAZIDE [Suspect]
     Indication: HYPERTENSION
     Dosage: 300 MG/12.5 MG AT 1 U ONCE DAILY
     Route: 048
     Dates: start: 20110901, end: 20111225
  3. INSULIN [Concomitant]
     Dosage: UNK
  4. BISOPROLOL FUMARATE [Concomitant]
     Dosage: UNK
  5. CLOPIDOGREL BISULFATE AND ASPIRIN [Concomitant]
     Dosage: UNK
  6. JANUMET [Suspect]
     Indication: TYPE 2 DIABETES MELLITUS
     Dosage: 50 MG/1000 MG AT 1 U TWICE DAILY
     Route: 048
     Dates: start: 20110101, end: 20111225

REACTIONS (2)
  - OEDEMATOUS PANCREATITIS [None]
  - RENAL FAILURE [None]
